FAERS Safety Report 5479288-4 (Version None)
Quarter: 2007Q4

REPORT INFORMATION
  Report Type: 
  Country: None (occurrence: None)
  Receive Date: 20071003
  Receipt Date: 20070924
  Transmission Date: 20080405
  Serious: Yes (Hospitalization)
  Sender: FDA-Public Use
  Company Number: 161977USA

PATIENT
  Sex: Female

DRUGS (1)
  1. SALBUTAMOL SULFATE INHALATION, 0.09 MG (SALBUTAMOL) [Suspect]
     Dosage: ORAL
     Route: 048

REACTIONS (2)
  - CARDIAC FAILURE [None]
  - RESPIRATORY FAILURE [None]
